FAERS Safety Report 4888043-5 (Version None)
Quarter: 2006Q1

REPORT INFORMATION
  Report Type: 
  Country: None (occurrence: None)
  Receive Date: 20060118
  Receipt Date: 20060103
  Transmission Date: 20060701
  Serious: Yes (Hospitalization, Other)
  Sender: FDA-Public Use
  Company Number: CA_040707125

PATIENT
  Age: 24 Year
  Sex: Male
  Weight: 68.2 kg

DRUGS (1)
  1. ZYPREXA [Suspect]
     Indication: INSOMNIA
     Dosage: 10 MG, DAILY (1/D)
     Dates: start: 20010301, end: 20030501

REACTIONS (23)
  - AMNESIA [None]
  - BLOOD GLUCOSE INCREASED [None]
  - BRAIN DAMAGE [None]
  - BRAIN SCAN ABNORMAL [None]
  - CRYING [None]
  - DRUG ABUSER [None]
  - DYSKINESIA [None]
  - FALL [None]
  - FOOD CRAVING [None]
  - GRAND MAL CONVULSION [None]
  - HEADACHE [None]
  - LETHARGY [None]
  - LOSS OF EMPLOYMENT [None]
  - MEMORY IMPAIRMENT [None]
  - NIGHTMARE [None]
  - PAIN [None]
  - ROTATOR CUFF SYNDROME [None]
  - SOMNOLENCE [None]
  - TENSION [None]
  - TREMOR [None]
  - UPPER LIMB FRACTURE [None]
  - URINARY INCONTINENCE [None]
  - WEIGHT INCREASED [None]
